FAERS Safety Report 6712318-8 (Version None)
Quarter: 2010Q2

REPORT INFORMATION
  Report Type: 
  Country: None (occurrence: None)
  Receive Date: 20100505
  Receipt Date: 20100427
  Transmission Date: 20101027
  Serious: Yes (Hospitalization)
  Sender: FDA-Public Use
  Company Number: US-GILEAD-2010-0028805

PATIENT
  Sex: Male
  Weight: 122.7 kg

DRUGS (17)
  1. LETAIRIS [Suspect]
     Indication: PULMONARY ARTERIAL HYPERTENSION
     Route: 048
     Dates: start: 20090218
  2. REMODULIN SQ [Concomitant]
  3. REVATIO [Concomitant]
  4. COUMADIN [Concomitant]
  5. LASIX [Concomitant]
  6. METOLAZONE [Concomitant]
  7. SPIRONOLACTONE [Concomitant]
  8. COREG [Concomitant]
  9. TOPAMAX [Concomitant]
  10. LYRICA [Concomitant]
  11. TRILIPIX [Concomitant]
  12. SELENIUM [Concomitant]
  13. KLOR-CON [Concomitant]
  14. SPIRIVA [Concomitant]
  15. MELATONIN [Concomitant]
  16. ZINC [Concomitant]
  17. VYTORIN [Concomitant]

REACTIONS (1)
  - CARDIAC FAILURE CONGESTIVE [None]
